FAERS Safety Report 5482929-9 (Version None)
Quarter: 2007Q4

REPORT INFORMATION
  Report Type: 
  Country: None (occurrence: None)
  Receive Date: 20071011
  Receipt Date: 20071001
  Transmission Date: 20080405
  Serious: Yes (Other)
  Sender: FDA-Public Use
  Company Number: US-SANOFI-SYNTHELABO-A03200700037

PATIENT
  Sex: Male

DRUGS (3)
  1. PLAVIX [Suspect]
     Indication: ANGINA UNSTABLE
     Dosage: UNK
     Route: 048
  2. PLAVIX [Suspect]
     Indication: MYOCARDIAL INFARCTION
     Dosage: UNK
     Route: 048
  3. PLAVIX [Suspect]
     Indication: PERIPHERAL ARTERIAL OCCLUSIVE DISEASE
     Dosage: UNK
     Route: 048

REACTIONS (1)
  - THROMBOSIS [None]
